FAERS Safety Report 5800461-7 (Version None)
Quarter: 2008Q3

REPORT INFORMATION
  Report Type: 
  Country: None (occurrence: None)
  Receive Date: 20080703
  Receipt Date: 20080626
  Transmission Date: 20090109
  Serious: Yes (Life-Threatening, Other)
  Sender: FDA-Public Use
  Company Number: A0714999A

PATIENT
  Age: 34 Year
  Sex: Female
  Weight: 59.1 kg

DRUGS (4)
  1. LAMICTAL [Suspect]
     Indication: DRUG USE FOR UNKNOWN INDICATION
     Dosage: 200MG TWICE PER DAY
     Route: 048
     Dates: start: 20070901, end: 20080309
  2. KLONOPIN [Concomitant]
  3. ZOLOFT [Concomitant]
  4. AMBIEN [Concomitant]

REACTIONS (5)
  - ANAPHYLACTIC REACTION [None]
  - HYPERHIDROSIS [None]
  - PANIC ATTACK [None]
  - RASH [None]
  - THROAT TIGHTNESS [None]
